FAERS Safety Report 21633378 (Version 1)
Quarter: 2022Q4

REPORT INFORMATION
  Report Type: Report from Study
  Country: US (occurrence: US)
  Receive Date: 20221123
  Receipt Date: 20221123
  Transmission Date: 20230112
  Serious: Yes (Hospitalization, Other)
  Sender: FDA-Public Use
  Company Number: US-002147023-NVSC2022US261063

PATIENT
  Sex: Male
  Weight: 99.8 kg

DRUGS (42)
  1. ENTRESTO [Suspect]
     Active Substance: SACUBITRIL\VALSARTAN
     Indication: Cardiac failure congestive
     Dosage: 1 DOSAGE FORM, BID
     Route: 048
     Dates: start: 20220527
  2. WARFARIN [Concomitant]
     Active Substance: WARFARIN
     Indication: Anticoagulant therapy
     Dosage: UNK
     Route: 065
  3. ASPIRIN [Concomitant]
     Active Substance: ASPIRIN
     Indication: Product used for unknown indication
     Dosage: 1 DOSAGE FORM, QD
     Route: 048
  4. ASPIRIN [Concomitant]
     Active Substance: ASPIRIN
     Dosage: 1 DOSAGE FORM, QD
     Route: 048
     Dates: start: 20160111
  5. PRAVASTATIN [Concomitant]
     Active Substance: PRAVASTATIN
     Indication: Product used for unknown indication
     Dosage: UNK
     Route: 065
  6. UNSPECIFIED INGREDIENT [Concomitant]
     Active Substance: UNSPECIFIED INGREDIENT
     Indication: Product used for unknown indication
     Dosage: UNK
     Route: 065
  7. ZYLOPRIM [Concomitant]
     Active Substance: ALLOPURINOL
     Indication: Product used for unknown indication
     Dosage: 1 DOSAGE FORM, QD
     Route: 048
  8. COENZYME Q10 [Concomitant]
     Active Substance: DIETARY SUPPLEMENT\UBIDECARENONE
     Indication: Product used for unknown indication
     Dosage: 200 MG, QD (AT BEDTIME)
     Route: 048
  9. COENZYME Q10 [Concomitant]
     Active Substance: DIETARY SUPPLEMENT\UBIDECARENONE
     Dosage: 200 MG, QD (AT BEDTIME)
     Route: 048
     Dates: start: 20150904
  10. DOCUSATE SODIUM [Concomitant]
     Active Substance: DOCUSATE SODIUM
     Dosage: 1 DOSAGE FORM, BID (STOOL SOFTENER)
     Route: 048
  11. DIFLUCAN [Concomitant]
     Active Substance: FLUCONAZOLE
     Indication: Product used for unknown indication
     Dosage: 1 DOSAGE FORM, QD (IN AM)
     Route: 048
  12. DIFLUCAN [Concomitant]
     Active Substance: FLUCONAZOLE
     Dosage: 1 DOSAGE FORM, QD (IN AM)
     Route: 048
     Dates: start: 20150730
  13. LASIX [Concomitant]
     Active Substance: FUROSEMIDE
     Indication: Product used for unknown indication
     Dosage: 1 DOSAGE FORM, BID (TAKE 1 TABLET FOR WEIGHT GAIN OF 5 POUNDS IN 24 HOURS)
     Route: 048
  14. LASIX [Concomitant]
     Active Substance: FUROSEMIDE
     Dosage: 1 DOSAGE FORM, BID (TAKE 1 TABLET FOR WEIGHT GAIN OF 5 POUNDS IN 24 HOURS)
     Route: 048
     Dates: start: 20220511, end: 20220916
  15. MAGNESIUM OXIDE [Concomitant]
     Active Substance: MAGNESIUM OXIDE
     Indication: Product used for unknown indication
     Dosage: 1 DOSAGE FORM, QD
     Route: 048
  16. TOPROL XL [Concomitant]
     Active Substance: METOPROLOL SUCCINATE
     Indication: Product used for unknown indication
     Dosage: 1 DOSAGE FORM, QD
     Route: 048
  17. TOPROL XL [Concomitant]
     Active Substance: METOPROLOL SUCCINATE
     Dosage: 25 MG, QD
     Route: 048
     Dates: start: 20220707
  18. CELLCEPT [Concomitant]
     Active Substance: MYCOPHENOLATE MOFETIL
     Indication: Product used for unknown indication
     Dosage: 2 DOSAGE FORM, BID
     Route: 048
  19. CELLCEPT [Concomitant]
     Active Substance: MYCOPHENOLATE MOFETIL
     Dosage: 2 DOSAGE FORM, BID
     Route: 048
     Dates: start: 20160914
  20. PROTONIX [Concomitant]
     Active Substance: PANTOPRAZOLE SODIUM
     Indication: Product used for unknown indication
     Dosage: 1 DOSAGE FORM, QD
     Route: 048
  21. PROTONIX [Concomitant]
     Active Substance: PANTOPRAZOLE SODIUM
     Dosage: 1 DOSAGE FORM, QD
     Route: 048
     Dates: start: 20220325
  22. PRAVACHOL [Concomitant]
     Active Substance: PRAVASTATIN SODIUM
     Indication: Product used for unknown indication
     Dosage: 1 DOSAGE FORM, QD
     Route: 048
  23. METAMUCIL [Concomitant]
     Active Substance: PLANTAGO SEED
     Indication: Product used for unknown indication
     Dosage: 1 DOSAGE FORM, QD
     Route: 048
  24. SODIUM BICARBONATE [Concomitant]
     Active Substance: SODIUM BICARBONATE
     Indication: Product used for unknown indication
     Dosage: 2 DOSAGE FORM, BID
     Route: 048
  25. SODIUM BICARBONATE [Concomitant]
     Active Substance: SODIUM BICARBONATE
     Dosage: 2 DOSAGE FORM, BID
     Route: 048
     Dates: start: 20220610
  26. PROGRAF [Concomitant]
     Active Substance: TACROLIMUS
     Indication: Product used for unknown indication
     Dosage: 1 DOSAGE FORM, BID
     Route: 048
  27. PROGRAF [Concomitant]
     Active Substance: TACROLIMUS
     Dosage: 1 DOSAGE FORM, BID
     Route: 048
     Dates: start: 20220324
  28. COUMADIN [Concomitant]
     Active Substance: WARFARIN SODIUM
     Indication: Anticoagulant therapy
     Dosage: TAKING 1 MG TF-W, 2 MG THUR OR AS DIRECTED BY ANTICOAGULANT DEPARTMENT INSTRUCTIONS
     Route: 048
  29. COUMADIN [Concomitant]
     Active Substance: WARFARIN SODIUM
     Dosage: TAKING 1 MG TF-W, 2 MG THUR OR AS DIRECTED BY ANTICOAGULANT DEPARTMENT INSTRUCTIONS
     Route: 048
     Dates: start: 20220513
  30. DIAMOX SEQUELS [Concomitant]
     Active Substance: ACETAZOLAMIDE
     Indication: Product used for unknown indication
     Dosage: 1 DOSAGE FORM, QD (8 AM)
     Route: 048
     Dates: start: 20220829, end: 20220829
  31. PERCOCET [Concomitant]
     Active Substance: ACETAMINOPHEN\OXYCODONE HYDROCHLORIDE
     Indication: Pain
     Dosage: 1 DOSAGE FORM, Q6H
     Route: 048
     Dates: start: 20220329, end: 20220901
  32. POLYETHYLENE GLYCOL [Concomitant]
     Active Substance: POLYETHYLENE GLYCOL
     Indication: Product used for unknown indication
     Dosage: 17 G, QD (TAKE 240 ML (17G). DISSOLVE 17G IN 240 ML OF BEVERAGE)
     Route: 048
  33. TIMOLOL [Concomitant]
     Active Substance: TIMOLOL
     Indication: Product used for unknown indication
     Dosage: UNK
     Route: 065
  34. DORZOLAMIDE [Concomitant]
     Active Substance: DORZOLAMIDE
     Indication: Product used for unknown indication
     Dosage: UNK
     Route: 065
  35. BRIMONIDINE [Concomitant]
     Active Substance: BRIMONIDINE TARTRATE
     Indication: Product used for unknown indication
     Dosage: UNK
     Route: 065
  36. FLUORESCEIN SODIUM [Concomitant]
     Active Substance: FLUORESCEIN SODIUM
     Indication: Product used for unknown indication
     Dosage: 1 STRIP
     Route: 065
  37. PROPARACAINE HYDROCHLORIDE [Concomitant]
     Active Substance: PROPARACAINE HYDROCHLORIDE
     Indication: Product used for unknown indication
     Dosage: 1 DROP
     Route: 065
  38. HYDROMORPHONE HCL [Concomitant]
     Active Substance: HYDROMORPHONE HYDROCHLORIDE
     Indication: Product used for unknown indication
     Dosage: UNK
     Route: 065
  39. ACETAZOLAMIDE SODIUM [Concomitant]
     Active Substance: ACETAZOLAMIDE SODIUM
     Indication: Product used for unknown indication
     Dosage: UNK
     Route: 065
  40. BRIMONIDINE TARTRATE [Concomitant]
     Active Substance: BRIMONIDINE TARTRATE
     Indication: Product used for unknown indication
     Dosage: 1 DROP
     Route: 065
  41. TIMOLOL MALEATE [Concomitant]
     Active Substance: TIMOLOL MALEATE
     Indication: Product used for unknown indication
     Dosage: 1 DROP
     Route: 065
  42. DORZOLAMIDE HYDROCHLORIDE [Concomitant]
     Active Substance: DORZOLAMIDE HYDROCHLORIDE
     Indication: Product used for unknown indication
     Dosage: 1 DROP
     Route: 065

REACTIONS (18)
  - Glaucoma [Unknown]
  - Blindness [Recovering/Resolving]
  - Cerebrovascular accident [Unknown]
  - Haemorrhage [Unknown]
  - Conjunctival haemorrhage [Unknown]
  - Renal failure [Unknown]
  - Carotid artery stenosis [Unknown]
  - Visual impairment [Unknown]
  - Hypoaesthesia [Unknown]
  - Contusion [Unknown]
  - Cranial nerve disorder [Unknown]
  - Diabetic neuropathy [Unknown]
  - Arteriosclerosis [Unknown]
  - Stenosis [Unknown]
  - Stress [Unknown]
  - Headache [Unknown]
  - Eye pain [Unknown]
  - Nausea [Unknown]
